FAERS Safety Report 7972772 (Version 4)
Quarter: 2013Q2

REPORT INFORMATION
  Report Type: Spontaneous
  Country: US (occurrence: US)
  Receive Date: 20110603
  Receipt Date: 20130417
  Transmission Date: 20140414
  Serious: Yes (Hospitalization)
  Sender: FDA-Public Use
  Company Number: US-BAYER-2010-004027

PATIENT
  Age: 48 Year
  Sex: Female
  Weight: 107.3 kg

DRUGS (4)
  1. YAZ [Suspect]
     Indication: PREMENSTRUAL SYNDROME
     Dosage: UNK
     Route: 048
     Dates: start: 20080208, end: 20081214
  2. YAZ [Suspect]
     Indication: CONTRACEPTION
  3. BENICAR [Concomitant]
     Indication: HYPERTENSION
     Dosage: 40 MG, QD
     Route: 048
  4. ASPIRIN [Concomitant]

REACTIONS (5)
  - Pulmonary embolism [None]
  - Chest pain [None]
  - Dyspnoea [None]
  - Anxiety [None]
  - Emotional distress [None]
